FAERS Safety Report 6884017-3 (Version None)
Quarter: 2010Q3

REPORT INFORMATION
  Report Type: 
  Country: None (occurrence: None)
  Receive Date: 20100729
  Receipt Date: 20100716
  Transmission Date: 20110219
  Serious: Yes (Other)
  Sender: FDA-Public Use
  Company Number: PHHY2010CA47116

PATIENT
  Sex: Female

DRUGS (6)
  1. CLOZARIL [Suspect]
     Indication: SCHIZOPHRENIA
     Dosage: UNK
     Route: 048
     Dates: start: 20061012, end: 20100623
  2. TOPAMAX [Concomitant]
     Dosage: 25 MG
  3. ARTANE [Concomitant]
     Dosage: 5 MG
  4. EPIVAL [Concomitant]
     Dosage: 500 MG
  5. FLUANXOL [Concomitant]
     Dosage: 40 MG, QMO
  6. TRAZODONE [Concomitant]
     Dosage: 100 MG

REACTIONS (2)
  - OBESITY [None]
  - WEIGHT INCREASED [None]
